FAERS Safety Report 7615734-5 (Version None)
Quarter: 2011Q3

REPORT INFORMATION
  Report Type: 
  Country: None (occurrence: None)
  Receive Date: 20110711
  Receipt Date: 20110627
  Transmission Date: 20111222
  Serious: Yes (Hospitalization)
  Sender: FDA-Public Use
  Company Number: AT-1186861

PATIENT
  Age: 36 Year
  Sex: Female

DRUGS (1)
  1. CYCLOGYL [Suspect]
     Dosage: ORAL
     Route: 048

REACTIONS (4)
  - ACCIDENTAL EXPOSURE [None]
  - VERTIGO [None]
  - HYPOKALAEMIA [None]
  - INCORRECT ROUTE OF DRUG ADMINISTRATION [None]
